FAERS Safety Report 19720420 (Version 1)
Quarter: 2021Q3

REPORT INFORMATION
  Report Type: Spontaneous
  Country: US (occurrence: US)
  Receive Date: 20210818
  Receipt Date: 20210818
  Transmission Date: 20211014
  Serious: Yes (Other)
  Sender: FDA-Public Use
  Company Number: US-PFIZER INC-202101013174

PATIENT
  Age: 48 Year
  Sex: Female
  Weight: 67.13 kg

DRUGS (1)
  1. CHANTIX [Suspect]
     Active Substance: VARENICLINE TARTRATE
     Indication: SMOKING CESSATION THERAPY
     Dosage: 1 MG
     Dates: start: 202010, end: 202011

REACTIONS (27)
  - Vitamin D deficiency [Unknown]
  - Blood thyroid stimulating hormone decreased [Recovered/Resolved]
  - Mouth haemorrhage [Unknown]
  - Dysstasia [Unknown]
  - Palpitations [Unknown]
  - Hypertension [Not Recovered/Not Resolved]
  - Arthralgia [Recovered/Resolved]
  - Antibody test abnormal [Unknown]
  - Visual impairment [Unknown]
  - Nervousness [Not Recovered/Not Resolved]
  - Basedow^s disease [Recovered/Resolved]
  - Thyroid mass [Unknown]
  - Constipation [Unknown]
  - Tremor [Not Recovered/Not Resolved]
  - Anxiety [Unknown]
  - Recalled product administered [Unknown]
  - Diplopia [Unknown]
  - Heart rate increased [Not Recovered/Not Resolved]
  - Hypertension [Not Recovered/Not Resolved]
  - Gait disturbance [Unknown]
  - Weight increased [Recovered/Resolved]
  - Granuloma [Unknown]
  - Hyperthyroidism [Recovered/Resolved]
  - Insomnia [Recovered/Resolved]
  - Speech disorder [Not Recovered/Not Resolved]
  - Pain in extremity [Recovered/Resolved]
  - Eating disorder [Unknown]

NARRATIVE: CASE EVENT DATE: 2020
